FAERS Safety Report 4638676-6 (Version None)
Quarter: 2005Q2

REPORT INFORMATION
  Report Type: 
  Country: None (occurrence: None)
  Receive Date: 20050418
  Receipt Date: 20050418
  Transmission Date: 20051028
  Serious: Yes (Life-Threatening, Hospitalization)
  Sender: FDA-Public Use
  Company Number: None

PATIENT
  Age: 70 Year
  Sex: Male
  Weight: 56.6996 kg

DRUGS (1)
  1. TISSUE [Suspect]
     Dates: start: 20040608

REACTIONS (7)
  - ABSCESS [None]
  - BLOOD CULTURE POSITIVE [None]
  - CARDIAC MURMUR [None]
  - HAEMODIALYSIS [None]
  - IMPLANT SITE INFECTION [None]
  - MYCOBACTERIUM FORTUITUM INFECTION [None]
  - PYREXIA [None]
